FAERS Safety Report 4332358-6 (Version None)
Quarter: 2004Q2

REPORT INFORMATION
  Report Type: 
  Country: None (occurrence: None)
  Receive Date: 20040401
  Receipt Date: 20040322
  Transmission Date: 20050107
  Serious: Yes (Hospitalization)
  Sender: FDA-Public Use
  Company Number: GB-JNJFOC-20040304767

PATIENT
  Age: 60 Year
  Sex: Male

DRUGS (5)
  1. REMICADE [Suspect]
     Indication: RHEUMATOID ARTHRITIS
     Dosage: 250 MG, INTRAVENOUS
     Route: 042
     Dates: start: 20020201
  2. LEFLUNOMIDE (LEFLUNOMIDE) [Concomitant]
  3. VOLTRAOL (CICLOFENAC SODIUM) [Concomitant]
  4. TRAMADOL HCL [Concomitant]
  5. LOSEC (OMEPRAZOLE) [Concomitant]

REACTIONS (2)
  - HAEMOPTYSIS [None]
  - HEADACHE [None]
